FAERS Safety Report 8987627 (Version 2)
Quarter: 2013Q1

REPORT INFORMATION
  Report Type: Spontaneous
  Country: US (occurrence: US)
  Receive Date: 20121227
  Receipt Date: 20130219
  Transmission Date: 20140127
  Serious: No
  Sender: FDA-Public Use
  Company Number: US-VERTEX PHARMACEUTICALS INC.-2012-026645

PATIENT
  Age: 56 Year
  Sex: Male
  Weight: 82 kg

DRUGS (4)
  1. INCIVEK [Suspect]
     Indication: HEPATITIS C
     Dosage: 750 MG, TID
     Route: 048
     Dates: start: 20121201
  2. RIBAVIRIN [Suspect]
     Indication: HEPATITIS C
     Dosage: 3 DF, BID
     Route: 048
     Dates: start: 20121201
  3. PEGASYS [Suspect]
     Indication: HEPATITIS C
     Dosage: 180 ?G, QW
     Route: 058
     Dates: start: 20121201
  4. LISINOPRIL [Concomitant]
     Indication: HYPERTENSION
     Dosage: 200 MG, QOD
     Route: 048

REACTIONS (2)
  - Nasopharyngitis [Not Recovered/Not Resolved]
  - Rash [Recovered/Resolved]
